FAERS Safety Report 6632332-0 (Version None)
Quarter: 2010Q1

REPORT INFORMATION
  Report Type: 
  Country: None (occurrence: None)
  Receive Date: 20100312
  Receipt Date: 20100308
  Transmission Date: 20100710
  Serious: Yes (Hospitalization)
  Sender: FDA-Public Use
  Company Number: B0638237A

PATIENT
  Sex: Male

DRUGS (12)
  1. AUGMENTIN '125' [Suspect]
     Route: 048
     Dates: start: 20100105, end: 20100210
  2. LANTUS [Suspect]
     Dosage: 18IU PER DAY
     Route: 058
     Dates: start: 20100201, end: 20100219
  3. TAHOR [Suspect]
     Dosage: 40MG PER DAY
     Route: 048
     Dates: start: 20090922, end: 20100218
  4. SERETIDE DISKUS [Concomitant]
     Indication: BRONCHITIS
     Route: 055
     Dates: start: 20100105
  5. DIFFU K [Concomitant]
     Route: 048
  6. ATACAND [Concomitant]
     Dosage: 8MG PER DAY
     Route: 048
  7. NOVONORM [Concomitant]
     Dosage: 2MG THREE TIMES PER DAY
     Route: 048
  8. LOXEN [Concomitant]
     Dosage: 20MG TWICE PER DAY
     Route: 048
     Dates: start: 20090922
  9. PLAVIX [Concomitant]
     Dosage: 75MG PER DAY
     Route: 048
     Dates: start: 20090922
  10. NITRODERM [Concomitant]
     Dosage: 10MG PER DAY
     Route: 062
  11. LASILIX FAIBLE [Concomitant]
     Dosage: 120MG PER DAY
     Route: 048
  12. CARDENSIEL [Concomitant]
     Dosage: 5MG PER DAY
     Route: 048

REACTIONS (4)
  - BLOOD CREATINE PHOSPHOKINASE INCREASED [None]
  - MYALGIA [None]
  - MYOGLOBIN BLOOD INCREASED [None]
  - RHABDOMYOLYSIS [None]
